FAERS Safety Report 9859415 (Version 1)
Quarter: 2014Q1

REPORT INFORMATION
  Report Type: Report from Study
  Country: US (occurrence: US)
  Receive Date: 20140131
  Receipt Date: 20140131
  Transmission Date: 20141002
  Serious: Yes (Death, Other)
  Sender: FDA-Public Use
  Company Number: US-ALEXION PHARMACEUTICALS INC.-A201400168

PATIENT
  Age: 3 Year
  Sex: Male

DRUGS (3)
  1. SOLIRIS [Suspect]
     Indication: THROMBOTIC MICROANGIOPATHY
     Dosage: UNK
     Route: 042
     Dates: start: 201312
  2. SOLIRIS [Suspect]
     Indication: OFF LABEL USE
  3. ENBREL [Concomitant]
     Route: 065

REACTIONS (8)
  - Death [Fatal]
  - Haemodynamic instability [Unknown]
  - Metabolic acidosis [Unknown]
  - Graft versus host disease [Unknown]
  - Human herpesvirus 6 infection [Unknown]
  - Erythema infectiosum [Unknown]
  - Pneumonitis [Unknown]
  - Off label use [Unknown]
